FAERS Safety Report 5975570-2 (Version None)
Quarter: 2008Q4

REPORT INFORMATION
  Report Type: 
  Country: None (occurrence: None)
  Receive Date: 20081202
  Receipt Date: 20081125
  Transmission Date: 20090506
  Serious: Yes (Other)
  Sender: FDA-Public Use
  Company Number: CH-JNJFOC-20081105614

PATIENT
  Sex: Male
  Weight: 75 kg

DRUGS (1)
  1. OXYBUTYNIN CHLORIDE [Suspect]
     Indication: INCONTINENCE
     Route: 048

REACTIONS (1)
  - HEPATIC ENZYME INCREASED [None]
